FAERS Safety Report 14803778 (Version 2)
Quarter: 2018Q2

REPORT INFORMATION
  Report Type: Report from Study
  Country: DE (occurrence: DE)
  Receive Date: 20180425
  Receipt Date: 20180527
  Transmission Date: 20180711
  Serious: Yes (Death, Hospitalization, Other)
  Sender: FDA-Public Use
  Company Number: DE-BRISTOL-MYERS SQUIBB COMPANY-BMS-2018-024503

PATIENT
  Age: 62 Year
  Sex: Male

DRUGS (1)
  1. NIVOLUMAB [Suspect]
     Active Substance: NIVOLUMAB
     Indication: MALIGNANT MELANOMA
     Dosage: 210 MG, Q2WK
     Route: 042
     Dates: start: 20171219, end: 20180227

REACTIONS (6)
  - General physical health deterioration [Unknown]
  - Hemiparesis [Not Recovered/Not Resolved]
  - Dysphagia [Not Recovered/Not Resolved]
  - Sleep disorder [Unknown]
  - Malignant neoplasm progression [Fatal]
  - Dysarthria [Not Recovered/Not Resolved]

NARRATIVE: CASE EVENT DATE: 20180310
